FAERS Safety Report 20085849 (Version 1)
Quarter: 2021Q4

REPORT INFORMATION
  Report Type: Spontaneous
  Country: CN (occurrence: CN)
  Receive Date: 20211118
  Receipt Date: 20211118
  Transmission Date: 20220303
  Serious: Yes (Other)
  Sender: FDA-Public Use
  Company Number: CN-PFIZER INC-202101527933

PATIENT
  Age: 3 Year
  Sex: Female

DRUGS (5)
  1. ZITHROMAX [Suspect]
     Active Substance: AZITHROMYCIN DIHYDRATE
     Indication: Pneumonia
     Dosage: 0.17 G, ONCE A DAY
     Route: 041
     Dates: start: 20210928, end: 20210928
  2. DEXTROSE [Concomitant]
     Active Substance: DEXTROSE
     Indication: Vehicle solution use
     Dosage: 200 ML, ONCE A DAY
     Route: 041
     Dates: start: 20210928, end: 20210928
  3. AMBROXOL [Concomitant]
     Active Substance: AMBROXOL
     Indication: Anti-infective therapy
     Dosage: UNK
     Route: 041
  4. AMBROXOL [Concomitant]
     Active Substance: AMBROXOL
     Indication: Cough
  5. AMBROXOL [Concomitant]
     Active Substance: AMBROXOL
     Indication: Productive cough

REACTIONS (3)
  - Exfoliative rash [Recovering/Resolving]
  - Eyelid oedema [Recovering/Resolving]
  - Off label use [Unknown]

NARRATIVE: CASE EVENT DATE: 20210928
